FAERS Safety Report 8107199-4 (Version None)
Quarter: 2012Q1

REPORT INFORMATION
  Report Type: 
  Country: None (occurrence: None)
  Receive Date: 20120202
  Receipt Date: 20120120
  Transmission Date: 20120608
  Serious: Yes (Death, Hospitalization, Other)
  Sender: FDA-Public Use
  Company Number: US-ELI_LILLY_AND_COMPANY-US201108006422

PATIENT
  Sex: Female
  Weight: 88 kg

DRUGS (28)
  1. FORTEO [Suspect]
     Dosage: 20 UG, QD
     Route: 058
     Dates: start: 20111101
  2. PREDNISONE TAB [Concomitant]
     Dosage: 40 MG, UNK
  3. FORTEO [Suspect]
     Dosage: 20 UG, QD
     Route: 058
  4. CALCIUM D3 [Concomitant]
  5. VITAMIN D [Concomitant]
  6. SIMVASTATIN [Concomitant]
     Dosage: 40 MG, UNK
  7. HYDROCHLOROTHIAZIDE [Concomitant]
  8. SULFAMETHOXAZOLE AND TRIMETHOPRIM DOUBLE STRENGTH [Concomitant]
  9. BACTRIM [Concomitant]
     Dosage: UNK, QD
  10. VITAMIN B-12 [Concomitant]
     Dosage: UNK, QD
  11. CYCLOBENZAPRINE [Concomitant]
  12. OXYCODONE HCL AND ACETAMINOPHEN [Concomitant]
  13. HYDROXYZINE [Concomitant]
  14. ZOCOR [Concomitant]
     Dosage: UNK, QD
  15. OXYCONTIN [Concomitant]
     Dosage: UNK UNK, PRN
  16. METOPROLOL [Concomitant]
  17. PROTOZOL                           /00012501/ [Concomitant]
  18. ERGOCALCIFEROL [Concomitant]
     Dosage: UNK, QD
  19. NEURONTIN [Concomitant]
     Dosage: UNK, QD
  20. FORTEO [Suspect]
     Indication: OSTEOPOROSIS
     Dosage: 20 UG, QD
     Route: 058
  21. LEVATOL [Concomitant]
  22. CALCIUM PLUS D3 [Concomitant]
     Dosage: UNK, BID
  23. HYDRALAZINE HCL [Concomitant]
     Dosage: UNK, TID
  24. FORTEO [Suspect]
     Dosage: 20 UG, QD
     Route: 058
     Dates: end: 20111101
  25. AMLODIPINE [Concomitant]
     Dosage: UNK, QD
  26. FUROSEMIDE [Concomitant]
  27. PREDNISONE TAB [Concomitant]
     Indication: ARTERITIS
     Dosage: 7.5 MG, QD
  28. LABETALOL HCL [Concomitant]
     Dosage: UNK, TID

REACTIONS (10)
  - LETHARGY [None]
  - DRUG DOSE OMISSION [None]
  - SPINAL COMPRESSION FRACTURE [None]
  - DEATH [None]
  - OVERDOSE [None]
  - DYSURIA [None]
  - GASTRIC HAEMORRHAGE [None]
  - MOBILITY DECREASED [None]
  - CEREBROVASCULAR ACCIDENT [None]
  - INCORRECT DOSE ADMINISTERED BY DEVICE [None]
